FAERS Safety Report 8365210-X (Version None)
Quarter: 2012Q2

REPORT INFORMATION
  Report Type: 
  Country: None (occurrence: None)
  Receive Date: 20120516
  Receipt Date: 20120501
  Transmission Date: 20120825
  Serious: Yes (Other)
  Sender: FDA-Public Use
  Company Number: US-ASTRAZENECA-2012SE28538

PATIENT
  Age: 57 Year
  Sex: Female
  Weight: 109.8 kg

DRUGS (11)
  1. PROGRAF [Concomitant]
  2. OMEPRAZOLE [Suspect]
     Route: 048
  3. AMITRIPTYLINE HCL [Concomitant]
  4. VITAMIN D [Concomitant]
  5. AMBIEN [Concomitant]
  6. LOMOTIL [Concomitant]
     Dosage: PRN
  7. COUMADIN [Concomitant]
  8. PREDNISONE TAB [Concomitant]
  9. ASPIRIN [Concomitant]
  10. MYFORTIC [Concomitant]
  11. SYNTHROID [Concomitant]

REACTIONS (9)
  - PYURIA [None]
  - RENAL FAILURE CHRONIC [None]
  - ARTERIAL THROMBOSIS [None]
  - LEG AMPUTATION [None]
  - SKIN LESION [None]
  - GASTROOESOPHAGEAL REFLUX DISEASE [None]
  - RENAL OSTEODYSTROPHY [None]
  - IMMUNOSUPPRESSION [None]
  - HYPOTHYROIDISM [None]
